FAERS Safety Report 5301561-0 (Version None)
Quarter: 2007Q2

REPORT INFORMATION
  Report Type: 
  Country: None (occurrence: None)
  Receive Date: 20070412
  Receipt Date: 20070330
  Transmission Date: 20071010
  Serious: Yes (Other)
  Sender: FDA-Public Use
  Company Number: 2007RR-06448

PATIENT
  Age: 18 Year
  Sex: Female

DRUGS (2)
  1. CIPROFLOXACIN [Suspect]
     Indication: PSEUDOMONAS INFECTION
     Dosage: 1 G, BID, ORAL
     Route: 048
     Dates: start: 20031128, end: 20031201
  2. RIFAMPICIN [Suspect]
     Indication: PSEUDOMONAS INFECTION
     Dosage: 300 MG, BID, ORAL
     Route: 048
     Dates: start: 20031128, end: 20031201

REACTIONS (6)
  - ACTIVATED PARTIAL THROMBOPLASTIN TIME PROLONGED [None]
  - COAGULOPATHY [None]
  - DRUG LEVEL DECREASED [None]
  - INTERNATIONAL NORMALISED RATIO INCREASED [None]
  - NEPHRITIS INTERSTITIAL [None]
  - VOMITING [None]
